FAERS Safety Report 6177685-5 (Version None)
Quarter: 2009Q2

REPORT INFORMATION
  Report Type: 
  Country: None (occurrence: None)
  Receive Date: 20090504
  Receipt Date: 20090430
  Transmission Date: 20091009
  Serious: Yes (Life-Threatening)
  Sender: FDA-Public Use
  Company Number: PHHY2009CH16354

PATIENT
  Age: 42 Year
  Sex: Female

DRUGS (2)
  1. LEPONEX [Suspect]
     Dosage: 100 MG/DAY
     Dates: start: 20061101
  2. HALDOL [Suspect]
     Dosage: 3 MG/DAY
     Dates: start: 20090316

REACTIONS (4)
  - ELECTROCARDIOGRAM QT PROLONGED [None]
  - ELECTROCARDIOGRAM RR INTERVAL PROLONGED [None]
  - HEART RATE INCREASED [None]
  - MALAISE [None]
